FAERS Safety Report 25852516 (Version 1)
Quarter: 2025Q3

REPORT INFORMATION
  Report Type: Spontaneous
  Country: EU (occurrence: EU)
  Receive Date: 20250926
  Receipt Date: 20250926
  Transmission Date: 20251020
  Serious: Yes (Other)
  Sender: GLAXOSMITHKLINE
  Company Number: EU-GSK-FI2025EME123125

PATIENT

DRUGS (2)
  1. ZEJULA [Suspect]
     Active Substance: NIRAPARIB
     Indication: Ovarian cancer
  2. PLATINUM [Suspect]
     Active Substance: PLATINUM
     Indication: Ovarian cancer

REACTIONS (1)
  - Malignant neoplasm progression [Unknown]
